FAERS Safety Report 5140025-4 (Version None)
Quarter: 2006Q4

REPORT INFORMATION
  Report Type: 
  Country: None (occurrence: None)
  Receive Date: 20061025
  Receipt Date: 20061012
  Transmission Date: 20070319
  Serious: Yes (Hospitalization, Other)
  Sender: FDA-Public Use
  Company Number: 2006128712

PATIENT
  Age: 54 Year
  Sex: Female

DRUGS (12)
  1. CELECOXIB                                           (CELECOXIB) [Suspect]
  2. ESTRADIOL [Suspect]
  3. GABAPENTIN [Suspect]
  4. CARISOPRODOL [Suspect]
  5. ACETAMINOPHEN [Suspect]
     Indication: BACK PAIN
     Dosage: 500 MG, EVERY 3-4 HOURS AROUND THE CLOCK)
  6. ACETAMINOPHEN [Suspect]
     Indication: NECK PAIN
     Dosage: 500 MG, EVERY 3-4 HOURS AROUND THE CLOCK)
  7. ACETAMINOPHEN [Suspect]
     Indication: PAIN IN EXTREMITY
     Dosage: 500 MG, EVERY 3-4 HOURS AROUND THE CLOCK)
  8. LORTAB [Suspect]
     Indication: BACK PAIN
     Dosage: 4-5 TIMES A DAY
  9. LORTAB [Suspect]
     Indication: NECK PAIN
     Dosage: 4-5 TIMES A DAY
  10. LORTAB [Suspect]
     Indication: PAIN IN EXTREMITY
     Dosage: 4-5 TIMES A DAY
  11. CITALOPRAM HYDROBROMIDE [Concomitant]
  12. FEXOFENADINE [Concomitant]

REACTIONS (15)
  - ABDOMINAL PAIN LOWER [None]
  - ASTERIXIS [None]
  - ASTHENIA [None]
  - DECREASED APPETITE [None]
  - DRUG LEVEL INCREASED [None]
  - HEPATOCELLULAR DAMAGE [None]
  - HEPATOTOXICITY [None]
  - HYPONATRAEMIA [None]
  - JAUNDICE [None]
  - LETHARGY [None]
  - LOSS OF CONSCIOUSNESS [None]
  - MENTAL STATUS CHANGES [None]
  - METABOLIC ACIDOSIS [None]
  - RENAL FAILURE [None]
  - SOMNOLENCE [None]
